FAERS Safety Report 18918355 (Version 1)
Quarter: 2021Q1

REPORT INFORMATION
  Report Type: Spontaneous
  Country: GB (occurrence: GB)
  Receive Date: 20210220
  Receipt Date: 20210220
  Transmission Date: 20210420
  Serious: Yes (Other)
  Sender: FDA-Public Use
  Company Number: GB-AMGEN-GBRSP2021026373

PATIENT
  Age: 62 Year
  Sex: Female

DRUGS (14)
  1. THYROXINE [Concomitant]
     Active Substance: LEVOTHYROXINE
     Dosage: 62.5 MICROGRAM, QD
  2. REPATHA [Suspect]
     Active Substance: EVOLOCUMAB
     Indication: HYPERCHOLESTEROLAEMIA
     Dosage: 140 MILLIGRAM, Q2WK
     Route: 051
     Dates: start: 2016
  3. BISACODYL. [Concomitant]
     Active Substance: BISACODYL
     Dosage: UNK
  4. EYLEA [Concomitant]
     Active Substance: AFLIBERCEPT
     Dosage: 1 KILOGRAM, QMO
     Route: 047
  5. SENNA [SENNA ALEXANDRINA] [Concomitant]
     Active Substance: SENNA LEAF
     Dosage: UNK
  6. ASPIRIN [ACETYLSALICYLIC ACID] [Concomitant]
     Active Substance: ASPIRIN
     Dosage: UNK, HALF DOSE
  7. CAPSAICIN. [Concomitant]
     Active Substance: CAPSAICIN
     Dosage: UNK
  8. TICAGRELOR. [Concomitant]
     Active Substance: TICAGRELOR
     Dosage: 60 MILLIGRAM, BID
  9. CETRIZIN [CETIRIZINE HYDROCHLORIDE] [Concomitant]
     Active Substance: CETIRIZINE HYDROCHLORIDE
     Dosage: UNK
  10. PARACETAMOL [Concomitant]
     Active Substance: ACETAMINOPHEN
     Dosage: UNK
  11. DEEP RELIEF [Concomitant]
     Dosage: UNK
  12. THYROXINE [Concomitant]
     Active Substance: LEVOTHYROXINE
     Dosage: 75 MICROGRAM, OCCASIONALLY
  13. VITAMIN D [COLECALCIFEROL] [Concomitant]
     Active Substance: CHOLECALCIFEROL
     Dosage: UNK
  14. HYLO [Concomitant]
     Dosage: UNK

REACTIONS (3)
  - Dehydration [Recovered/Resolved]
  - Intestinal obstruction [Unknown]
  - Constipation [Unknown]
